FAERS Safety Report 6700575-3 (Version None)
Quarter: 2010Q2

REPORT INFORMATION
  Report Type: 
  Country: None (occurrence: None)
  Receive Date: 20100428
  Receipt Date: 20100420
  Transmission Date: 20101027
  Serious: Yes (Other)
  Sender: FDA-Public Use
  Company Number: D0067322A

PATIENT

DRUGS (1)
  1. MYLERAN [Suspect]
     Route: 048

REACTIONS (2)
  - BONE MARROW FAILURE [None]
  - OVERDOSE [None]
